FAERS Safety Report 15143184 (Version 2)
Quarter: 2018Q3

REPORT INFORMATION
  Report Type: Spontaneous
  Country: BE (occurrence: BE)
  Receive Date: 20180713
  Receipt Date: 20180718
  Transmission Date: 20181010
  Serious: Yes (Life-Threatening, Hospitalization)
  Sender: FDA-Public Use
  Company Number: PHHY2016BE187036

PATIENT
  Age: 42 Year
  Sex: Male
  Weight: 88 kg

DRUGS (15)
  1. VALIUM [Concomitant]
     Active Substance: DIAZEPAM
     Indication: BONE PAIN
     Dosage: 10 MG, QD
     Route: 048
     Dates: start: 20160719
  2. GEMCITABINE HYDROCHLORIDE. [Suspect]
     Active Substance: GEMCITABINE HYDROCHLORIDE
     Indication: NON-SMALL CELL LUNG CANCER
     Dosage: UNK
     Route: 042
  3. AVELUMAB [Suspect]
     Active Substance: AVELUMAB
     Dosage: UNK
     Route: 065
  4. AVELUMAB [Suspect]
     Active Substance: AVELUMAB
     Dosage: UNK
     Route: 065
  5. REDOMEX [Concomitant]
     Active Substance: AMITRIPTYLINE HYDROCHLORIDE
     Indication: BONE PAIN
     Dosage: 25 MG, QD
     Route: 048
     Dates: start: 20160617
  6. AVELUMAB [Suspect]
     Active Substance: AVELUMAB
     Dosage: 970 MG, CYCLIC
     Route: 042
     Dates: start: 20160411
  7. QVAR [Concomitant]
     Active Substance: BECLOMETHASONE DIPROPIONATE
     Indication: COUGH
     Dosage: 50 UG (PUFF)
     Route: 065
  8. DAFALGAN [Concomitant]
     Active Substance: ACETAMINOPHEN
     Indication: BONE PAIN
     Dosage: 1 G, UNK
     Route: 048
     Dates: start: 20160531, end: 20160801
  9. AVELUMAB [Suspect]
     Active Substance: AVELUMAB
     Indication: NON-SMALL CELL LUNG CANCER
     Dosage: UNK
     Route: 065
  10. CARBOPLATIN. [Suspect]
     Active Substance: CARBOPLATIN
     Indication: NON-SMALL CELL LUNG CANCER
     Dosage: UNK
     Route: 042
  11. AVELUMAB [Suspect]
     Active Substance: AVELUMAB
     Dosage: 900 MG, CYCLIC
     Route: 065
     Dates: end: 20160620
  12. TEMESTA [Concomitant]
     Indication: INSOMNIA
     Dosage: 1 OT, QD
     Route: 048
     Dates: start: 201607
  13. NEPHRON [Concomitant]
     Indication: BONE PAIN
     Dosage: 5 MG, BID
     Route: 048
     Dates: start: 20160720
  14. MOVICOL [Concomitant]
     Active Substance: POLYETHYLENE GLYCOL 3350\POTASSIUM CHLORIDE\SODIUM BICARBONATE\SODIUM CHLORIDE
     Indication: CONSTIPATION
     Dosage: UNK
     Route: 048
  15. METHADONE [Concomitant]
     Active Substance: METHADONE HYDROCHLORIDE
     Indication: BONE PAIN
     Dosage: 5 MG, BID
     Route: 048
     Dates: start: 20160718

REACTIONS (4)
  - Pneumonia [Recovered/Resolved]
  - Febrile neutropenia [Recovered/Resolved]
  - Sepsis [Recovered/Resolved]
  - Bone pain [Recovered/Resolved]

NARRATIVE: CASE EVENT DATE: 20160801
